FAERS Safety Report 14364245 (Version 2)
Quarter: 2018Q2

REPORT INFORMATION
  Report Type: Spontaneous
  Country: US (occurrence: US)
  Receive Date: 20180108
  Receipt Date: 20180502
  Transmission Date: 20180711
  Serious: No
  Sender: FDA-Public Use
  Company Number: US-LUNDBECK-DKLU2036235

PATIENT
  Sex: Female
  Weight: 50 kg

DRUGS (1)
  1. NORTHERA [Suspect]
     Active Substance: DROXIDOPA
     Indication: PRODUCT USED FOR UNKNOWN INDICATION
     Dosage: SCHEDULE C - FIXED DOSE
     Route: 048
     Dates: start: 20170816

REACTIONS (1)
  - Peripheral swelling [Recovered/Resolved]
